FAERS Safety Report 4333296-5 (Version None)
Quarter: 2004Q2

REPORT INFORMATION
  Report Type: 
  Country: None (occurrence: None)
  Receive Date: 20040405
  Receipt Date: 20040322
  Transmission Date: 20050107
  Serious: Yes (Other)
  Sender: FDA-Public Use
  Company Number: US-JNJFOC-20040201729

PATIENT
  Age: 67 Year
  Sex: Female
  Weight: 52.1637 kg

DRUGS (2)
  1. REMICADE [Suspect]
     Dosage: INTRAVENOUS
     Route: 042
  2. PREDNISONE [Concomitant]

REACTIONS (2)
  - LUPUS-LIKE SYNDROME [None]
  - RHEUMATOID ARTHRITIS [None]
